FAERS Safety Report 13591964 (Version 1)
Quarter: 2017Q2

REPORT INFORMATION
  Report Type: Spontaneous
  Country: JP (occurrence: JP)
  Receive Date: 20170530
  Receipt Date: 20170530
  Transmission Date: 20170830
  Serious: Yes (Death)
  Sender: FDA-Public Use
  Company Number: JP-JNJFOC-20170527014

PATIENT
  Age: 71 Year
  Sex: Male
  Weight: 56 kg

DRUGS (19)
  1. LANTUS [Concomitant]
     Active Substance: INSULIN GLARGINE
     Indication: TYPE 2 DIABETES MELLITUS
     Dosage: BEFORE ADMINISTRATION OF CANAGLIFLOZIN
     Route: 051
     Dates: end: 20161224
  2. PIMOBENDAN [Concomitant]
     Active Substance: PIMOBENDAN
     Dosage: BEFORE ADMINISTRATION OF CANAGLU
     Route: 048
     Dates: end: 20161224
  3. NOVORAPID [Concomitant]
     Active Substance: INSULIN ASPART
     Indication: TYPE 2 DIABETES MELLITUS
     Dosage: BEFORE ADMINISTRATION OF CANAGLIFLOZIN
     Route: 051
     Dates: end: 20161224
  4. SAMSCA [Concomitant]
     Active Substance: TOLVAPTAN
     Dosage: BEFORE ADMINISTRATION OF CANAGLU
     Route: 048
     Dates: end: 20161224
  5. DORNER [Concomitant]
     Active Substance: BERAPROST SODIUM
     Dosage: BEFORE ADMINISTRATION OF CANAGLU
     Route: 048
     Dates: end: 20161224
  6. DIART [Concomitant]
     Active Substance: AZOSEMIDE
     Dosage: BEFORE ADMINISTRATION OF CANAGLU
     Route: 048
     Dates: end: 20161224
  7. NEXIUM [Concomitant]
     Active Substance: ESOMEPRAZOLE MAGNESIUM
     Dosage: BEFORE ADMINISTRATION OF CANAGLU
     Route: 048
     Dates: end: 20161224
  8. TRAZENTA [Concomitant]
     Active Substance: LINAGLIPTIN
     Indication: TYPE 2 DIABETES MELLITUS
     Dosage: BEFORE ADMINISTRATION OF CANAGLIFLOZIN
     Route: 048
     Dates: end: 20161224
  9. LASIX [Concomitant]
     Active Substance: FUROSEMIDE
     Dosage: BEFORE ADMINISTRATION OF CANAGLU
     Route: 048
     Dates: end: 20161224
  10. WARFARIN [Concomitant]
     Active Substance: WARFARIN
     Indication: PROPHYLAXIS
     Dosage: BEFORE ADMINISTRATION OF CANAGLU
     Route: 048
     Dates: end: 20161224
  11. RENIVACE [Concomitant]
     Active Substance: ENALAPRIL
     Dosage: BEFORE ADMINISTRATION OF CANAGLU
     Route: 048
     Dates: end: 20161224
  12. THYRADIN S [Concomitant]
     Active Substance: LEVOTHYROXINE SODIUM
     Dosage: BEFORE ADMINISTRATION OF CANAGLU
     Route: 048
     Dates: end: 20161224
  13. SELARA [Concomitant]
     Active Substance: EPLERENONE
     Dosage: BEFORE ADMINISTRATION OF CANAGLU
     Route: 048
     Dates: end: 20161224
  14. FEBURIC [Concomitant]
     Active Substance: FEBUXOSTAT
     Dosage: BEFORE ADMINISTRATION OF CANAGLU
     Route: 048
     Dates: end: 20161224
  15. CRESTOR [Concomitant]
     Active Substance: ROSUVASTATIN CALCIUM
     Dosage: BEFORE ADMINISTRATION OF CANAGLU
     Route: 048
     Dates: end: 20161224
  16. CARVEDILOL. [Concomitant]
     Active Substance: CARVEDILOL
     Dosage: BEFORE ADMINISTRATION OF CANAGLU
     Route: 048
     Dates: end: 20161224
  17. CANAGLU [Suspect]
     Active Substance: CANAGLIFLOZIN
     Indication: TYPE 2 DIABETES MELLITUS
     Route: 048
     Dates: start: 20160427, end: 20161224
  18. BAYASPIRIN [Concomitant]
     Active Substance: ASPIRIN
     Indication: PROPHYLAXIS
     Dosage: BEFORE ADMINISTRATION OF CANAGLIFLOZIN
     Route: 048
     Dates: end: 20161224
  19. AMIODARONE [Concomitant]
     Active Substance: AMIODARONE
     Dosage: BEFORE ADMINISTRATION OF CANAGLU
     Route: 048
     Dates: end: 20161224

REACTIONS (1)
  - Cardiac failure [Fatal]

NARRATIVE: CASE EVENT DATE: 20161128
